FAERS Safety Report 24206379 (Version 4)
Quarter: 2025Q2

REPORT INFORMATION
  Report Type: Report from Study
  Country: GB (occurrence: GB)
  Receive Date: 20240813
  Receipt Date: 20250407
  Transmission Date: 20250716
  Serious: Yes (Hospitalization)
  Sender: NOVARTIS
  Company Number: GB-002147023-NVSC2024GB162840

PATIENT
  Sex: Female

DRUGS (3)
  1. COSENTYX [Suspect]
     Active Substance: SECUKINUMAB
     Indication: Hidradenitis
     Route: 058
     Dates: start: 20240227, end: 20241231
  2. FOLIC ACID [Concomitant]
     Active Substance: FOLIC ACID
     Indication: Blood iron decreased
     Route: 065
  3. CITALOPRAM [Concomitant]
     Active Substance: CITALOPRAM
     Indication: Analgesic therapy
     Route: 065

REACTIONS (3)
  - Localised infection [Unknown]
  - Decreased immune responsiveness [Unknown]
  - Infection [Unknown]
